FAERS Safety Report 8027450-9 (Version None)
Quarter: 2012Q1

REPORT INFORMATION
  Report Type: 
  Country: None (occurrence: None)
  Receive Date: 20120106
  Receipt Date: 20111227
  Transmission Date: 20120608
  Serious: Yes (Hospitalization, Other)
  Sender: FDA-Public Use
  Company Number: US-JNJFOC-20111212275

PATIENT
  Sex: Male
  Weight: 44.91 kg

DRUGS (1)
  1. ZYTIGA [Suspect]
     Indication: PROSTATE CANCER METASTATIC
     Route: 048
     Dates: start: 20110101

REACTIONS (5)
  - LOSS OF CONSCIOUSNESS [None]
  - FRACTURE [None]
  - OEDEMA [None]
  - FALL [None]
  - CARDIAC FAILURE [None]
